FAERS Safety Report 18568285 (Version 2)
Quarter: 2021Q1

REPORT INFORMATION
  Report Type: Report from Study
  Country: CA (occurrence: CA)
  Receive Date: 20201202
  Receipt Date: 20210120
  Transmission Date: 20210419
  Serious: Yes (Other)
  Sender: FDA-Public Use
  Company Number: CA-TAKEDA-2020TUS033985

PATIENT
  Age: 28 Year
  Sex: Male

DRUGS (3)
  1. VEDOLIZUMAB [Suspect]
     Active Substance: VEDOLIZUMAB
     Indication: COLITIS ULCERATIVE
     Dosage: 300 MILLIGRAM
     Route: 042
     Dates: start: 20200430
  2. VEDOLIZUMAB [Suspect]
     Active Substance: VEDOLIZUMAB
     Dosage: 300 MILLIGRAM
     Route: 042
     Dates: end: 20200930
  3. BUDESONIDE. [Concomitant]
     Active Substance: BUDESONIDE
     Indication: COLITIS ULCERATIVE
     Dosage: UNK

REACTIONS (3)
  - Colitis ulcerative [Not Recovered/Not Resolved]
  - Therapeutic reaction time decreased [Unknown]
  - Drug ineffective [Unknown]
